FAERS Safety Report 7685730-0 (Version None)
Quarter: 2011Q3

REPORT INFORMATION
  Report Type: 
  Country: None (occurrence: None)
  Receive Date: 20110816
  Receipt Date: 20110804
  Transmission Date: 20111222
  Serious: Yes (Hospitalization)
  Sender: FDA-Public Use
  Company Number: GB-ELI_LILLY_AND_COMPANY-GB200901003636

PATIENT
  Sex: Male

DRUGS (9)
  1. SOMATROPIN [Suspect]
     Indication: GROWTH HORMONE DEFICIENCY
     Dosage: 0.2 MG, DAILY (1/D)
     Dates: start: 20031021
  2. ATORVASTATIN [Concomitant]
     Dosage: UNK
     Dates: start: 20070522
  3. MOCLOBEMIDE [Concomitant]
     Dosage: UNK
     Dates: start: 20020817
  4. CLOPIDOGREL [Concomitant]
     Dosage: UNK
     Dates: start: 20090117
  5. LANSOPRAZOLE [Concomitant]
     Dosage: UNK
     Dates: start: 20090117
  6. PHENYTOIN [Concomitant]
     Dosage: UNK
     Dates: start: 19990518
  7. LEVOTHYROXINE SODIUM [Concomitant]
     Dosage: UNK
     Dates: start: 20001018
  8. HYDROCORTISONE [Concomitant]
     Dosage: UNK
     Dates: start: 20001018
  9. NEBIDO [Concomitant]
     Dosage: UNK
     Dates: start: 20051123

REACTIONS (1)
  - CEREBROVASCULAR ACCIDENT [None]
